FAERS Safety Report 23999953 (Version 2)
Quarter: 2024Q3

REPORT INFORMATION
  Report Type: Report from Study
  Country: US (occurrence: US)
  Receive Date: 20240621
  Receipt Date: 20240711
  Transmission Date: 20241017
  Serious: Yes (Death, Other)
  Sender: SANOFI AVENTIS
  Company Number: US-SANOFI-02098745

PATIENT
  Age: 70 Year
  Sex: Male

DRUGS (1)
  1. DRONEDARONE [Suspect]
     Active Substance: DRONEDARONE
     Indication: Atrial fibrillation
     Dosage: 400 MG, BID
     Route: 058
     Dates: end: 20240609

REACTIONS (2)
  - Hepatic cancer [Fatal]
  - Lung neoplasm malignant [Fatal]
